FAERS Safety Report 7935753-9 (Version None)
Quarter: 2011Q4

REPORT INFORMATION
  Report Type: 
  Country: None (occurrence: None)
  Receive Date: 20111123
  Receipt Date: 20111115
  Transmission Date: 20120403
  Serious: Yes (Other)
  Sender: FDA-Public Use
  Company Number: PHEH2011US00575

PATIENT
  Sex: Female
  Weight: 90.703 kg

DRUGS (19)
  1. DIOVAN [Concomitant]
  2. CYCLOBENZAPRINE [Concomitant]
  3. KLOR-CON [Concomitant]
  4. TRIAMTERENE AND HYDROCHLOROTHIAZID [Concomitant]
  5. STARLIX [Concomitant]
  6. DIURETICS [Concomitant]
  7. CELEBREX [Concomitant]
  8. ALLEGRA [Concomitant]
  9. VESICARE [Concomitant]
  10. EXJADE [Suspect]
     Indication: HAEMATOPOIETIC NEOPLASM
     Dosage: 500 MG, TID
     Route: 048
     Dates: start: 20100609
  11. CLONIDINE [Concomitant]
  12. LEVOXYL [Concomitant]
  13. JANUVIA [Concomitant]
  14. ALTACE [Concomitant]
  15. PANTOPRAZOLE [Concomitant]
  16. EXJADE [Suspect]
     Indication: SERUM FERRITIN INCREASED
  17. REMERON [Concomitant]
  18. ACETAMINOPHEN [Concomitant]
  19. ATENOLOL [Concomitant]

REACTIONS (4)
  - HYPOTENSION [None]
  - HAEMOGLOBIN DECREASED [None]
  - RENAL FAILURE [None]
  - BLOOD CREATININE INCREASED [None]
